FAERS Safety Report 16898707 (Version 10)
Quarter: 2019Q4

REPORT INFORMATION
  Report Type: Spontaneous
  Country: US (occurrence: US)
  Receive Date: 20191009
  Receipt Date: 20191220
  Transmission Date: 20200122
  Serious: Yes (Other)
  Sender: FDA-Public Use
  Company Number: US-PFIZER INC-2017208118

PATIENT
  Age: 71 Year
  Sex: Male
  Weight: 78.47 kg

DRUGS (12)
  1. TAFAMIDIS MEGLUMINE [Suspect]
     Active Substance: TAFAMIDIS MEGLUMINE
     Indication: CARDIAC AMYLOIDOSIS
     Dosage: 420 MILLIGRAM, QD
     Route: 048
  2. ELIQUIS [Suspect]
     Active Substance: APIXABAN
     Indication: ATRIAL FIBRILLATION
  3. KLOR-CON M20 [Concomitant]
     Active Substance: POTASSIUM CHLORIDE
     Indication: CARDIAC AMYLOIDOSIS
     Dosage: UNK
     Dates: start: 201909
  4. ELIQUIS [Suspect]
     Active Substance: APIXABAN
     Indication: CARDIAC AMYLOIDOSIS
     Dosage: 5 MG, 2X/DAY
     Route: 048
     Dates: start: 201904
  5. ELIQUIS [Suspect]
     Active Substance: APIXABAN
     Indication: CARDIAC FAILURE CONGESTIVE
  6. ELIQUIS [Suspect]
     Active Substance: APIXABAN
     Indication: CEREBROVASCULAR ACCIDENT PROPHYLAXIS
  7. COUMADIN [Concomitant]
     Active Substance: WARFARIN SODIUM
     Indication: CARDIAC DISORDER
     Dosage: 5 MG, 1X/DAY
     Route: 048
     Dates: start: 201911
  8. TAFAMIDIS MEGLUMINE [Suspect]
     Active Substance: TAFAMIDIS MEGLUMINE
     Dosage: 80 MG, 1X/DAY
     Route: 048
     Dates: start: 201910
  9. TAFAMIDIS MEGLUMINE [Suspect]
     Active Substance: TAFAMIDIS MEGLUMINE
     Dosage: 80 MG, DAILY (FOUR 20 MG TABLETS)
     Route: 048
     Dates: start: 201909
  10. LASIX [Concomitant]
     Active Substance: FUROSEMIDE
     Indication: CARDIAC AMYLOIDOSIS
     Dosage: 40 MG, 2X/DAY
     Route: 048
     Dates: start: 201806
  11. ELIQUIS [Suspect]
     Active Substance: APIXABAN
     Indication: ATRIOVENTRICULAR BLOCK COMPLETE
  12. LASIX [Concomitant]
     Active Substance: FUROSEMIDE
     Indication: AMYLOIDOSIS
     Dosage: 40 MILLIGRAM, BID (TWO TIMES IN A DAY)
     Route: 065
     Dates: start: 201905

REACTIONS (2)
  - Headache [Unknown]
  - Cardiac disorder [Unknown]
